FAERS Safety Report 8469817-0 (Version None)
Quarter: 2012Q2

REPORT INFORMATION
  Report Type: 
  Country: None (occurrence: None)
  Receive Date: 20120626
  Receipt Date: 20120620
  Transmission Date: 20120825
  Serious: Yes (Life-Threatening, Hospitalization)
  Sender: FDA-Public Use
  Company Number: US-RB-041622-12

PATIENT
  Age: 36 Year
  Sex: Female

DRUGS (1)
  1. SUBOXONE [Suspect]
     Indication: PRODUCT USED FOR UNKNOWN INDICATION
     Dosage: DOSING DETAILS UNKNOWN
     Route: 065

REACTIONS (9)
  - BIPOLAR I DISORDER [None]
  - ARTHRITIS [None]
  - WRONG TECHNIQUE IN DRUG USAGE PROCESS [None]
  - STAB WOUND [None]
  - PAIN [None]
  - SUICIDE ATTEMPT [None]
  - NERVE INJURY [None]
  - SUBSTANCE ABUSE [None]
  - ATTENTION DEFICIT/HYPERACTIVITY DISORDER [None]
